FAERS Safety Report 10563875 (Version 2)
Quarter: 2015Q1

REPORT INFORMATION
  Report Type: Report from Study
  Country: US (occurrence: US)
  Receive Date: 20141104
  Receipt Date: 20150209
  Transmission Date: 20150720
  Serious: Yes (Death, Hospitalization)
  Sender: FDA-Public Use
  Company Number: US-BAYER-2014-159507

PATIENT
  Age: 74 Year
  Sex: Male

DRUGS (1)
  1. STIVARGA [Suspect]
     Active Substance: REGORAFENIB
     Indication: COLORECTAL CANCER
     Dosage: 4 TABLETS
     Route: 048
     Dates: start: 20141017

REACTIONS (2)
  - Respiratory arrest [Fatal]
  - Anaphylactic reaction [None]

NARRATIVE: CASE EVENT DATE: 20141017
